FAERS Safety Report 20165057 (Version 1)
Quarter: 2021Q4

REPORT INFORMATION
  Report Type: Spontaneous
  Country: US (occurrence: None)
  Receive Date: 20211208
  Receipt Date: 20211208
  Transmission Date: 20220303
  Serious: Yes (Life-Threatening, Hospitalization)
  Sender: FDA-Public Use
  Company Number: None

PATIENT
  Age: 71 Year
  Weight: 75 kg

DRUGS (2)
  1. ATEZOLIZUMAB [Suspect]
     Active Substance: ATEZOLIZUMAB
     Indication: Small cell lung cancer
     Dosage: FREQUENCY : ONCE;?
     Route: 042
     Dates: start: 20210402, end: 20210403
  2. ATEZOLIZUMAB [Suspect]
     Active Substance: ATEZOLIZUMAB
     Dosage: FREQUENCY : ONCE;?
     Route: 042
     Dates: start: 20210402, end: 20210403

REACTIONS (2)
  - Toxic epidermal necrolysis [None]
  - Erythema multiforme [None]

NARRATIVE: CASE EVENT DATE: 20210416
